FAERS Safety Report 11955498 (Version 3)
Quarter: 2016Q1

REPORT INFORMATION
  Report Type: Report from Study
  Country: US (occurrence: US)
  Receive Date: 20160125
  Receipt Date: 20160302
  Transmission Date: 20160526
  Serious: Yes (Hospitalization, Other)
  Sender: FDA-Public Use
  Company Number: US-AMGEN-USASP2016006233

PATIENT
  Age: 40 Year
  Sex: Female

DRUGS (2)
  1. ENBREL [Suspect]
     Active Substance: ETANERCEPT
     Indication: SPONDYLOARTHROPATHY
     Dosage: 50 MG, QWK
     Route: 065
     Dates: start: 2010, end: 201507
  2. METHOTREXATE [Concomitant]
     Active Substance: METHOTREXATE
     Dosage: UNK

REACTIONS (5)
  - Nasopharyngitis [Unknown]
  - Off label use [Unknown]
  - Pneumonia [Unknown]
  - Pneumothorax [Unknown]
  - Empyema [Unknown]

NARRATIVE: CASE EVENT DATE: 2010
